FAERS Safety Report 5269607-6 (Version None)
Quarter: 2007Q1

REPORT INFORMATION
  Report Type: 
  Country: None (occurrence: None)
  Receive Date: 20061213
  Receipt Date: 20031103
  Transmission Date: 20070707
  Serious: Yes (Other)
  Sender: FDA-Public Use
  Company Number: 2003UW13254

PATIENT
  Age: 80 Year
  Sex: Female
  Weight: 67.1324 kg

DRUGS (11)
  1. IRESSA [Suspect]
     Indication: NON-SMALL CELL LUNG CANCER
     Dosage: 250 MG PO
     Route: 048
     Dates: start: 20030919
  2. LABETALOL HCL [Concomitant]
  3. CARDURA [Concomitant]
  4. BETAPACE [Concomitant]
  5. PRILOSEC [Concomitant]
  6. OPTIPRANOLOL [Concomitant]
  7. ATIVAN [Concomitant]
  8. VITAMIN CAP [Concomitant]
  9. CALCIUM [Concomitant]
  10. DOXAZOSIN MESYLATE [Concomitant]
  11. AMBIEN [Concomitant]

REACTIONS (2)
  - ABDOMINAL PAIN UPPER [None]
  - DIARRHOEA [None]
